FAERS Safety Report 13076183 (Version 1)
Quarter: 2016Q4

REPORT INFORMATION
  Report Type: Spontaneous
  Country: US (occurrence: US)
  Receive Date: 20161230
  Receipt Date: 20161230
  Transmission Date: 20170207
  Serious: No
  Sender: FDA-Public Use
  Company Number: US-SUPERNUS PHARMACEUTICALS, INC.-2016SUP00168

PATIENT
  Age: 50 Year
  Sex: Female
  Weight: 114.74 kg

DRUGS (5)
  1. HYDROCHLOROTHIAZIDE. [Concomitant]
     Active Substance: HYDROCHLOROTHIAZIDE
  2. OXTELLAR XR [Suspect]
     Active Substance: OXCARBAZEPINE
     Indication: SEIZURE
     Dosage: 1200 MG, 1X/DAY
     Dates: start: 20161003
  3. BYSTOLIC [Concomitant]
     Active Substance: NEBIVOLOL HYDROCHLORIDE
  4. KEPPRA [Concomitant]
     Active Substance: LEVETIRACETAM
  5. AVAPRO [Concomitant]
     Active Substance: IRBESARTAN

REACTIONS (2)
  - Somnolence [Not Recovered/Not Resolved]
  - Headache [Not Recovered/Not Resolved]

NARRATIVE: CASE EVENT DATE: 20161003
